FAERS Safety Report 9652545 (Version 1)
Quarter: 2013Q4

REPORT INFORMATION
  Report Type: Spontaneous
  Country: US (occurrence: US)
  Receive Date: 20131029
  Receipt Date: 20131029
  Transmission Date: 20140711
  Serious: No
  Sender: FDA-Public Use
  Company Number: US-JNJFOC-20131012298

PATIENT
  Age: 99 Year
  Sex: Female
  Weight: 49.9 kg

DRUGS (11)
  1. SANDOZ FENTANYL TRANSDERMAL SYSTEM [Suspect]
     Indication: ARTHRALGIA
     Route: 062
     Dates: start: 20131001, end: 201310
  2. SANDOZ FENTANYL TRANSDERMAL SYSTEM [Suspect]
     Indication: ARTHRALGIA
     Dosage: ONCE EVERY 3-4 DAYS
     Route: 062
     Dates: start: 201310
  3. CODEINE [Suspect]
     Indication: ARTHRALGIA
     Route: 048
     Dates: start: 20131001, end: 201310
  4. TRIAMTERENE HCTZ [Concomitant]
     Indication: BLOOD PRESSURE
     Route: 048
  5. CELEBREX [Concomitant]
     Indication: PAIN
     Route: 048
     Dates: start: 2010
  6. MIRTAZAPINE [Concomitant]
     Indication: SLEEP DISORDER
     Route: 048
  7. PAXIL [Concomitant]
     Indication: DEPRESSION
     Route: 048
  8. HYDROCODONE [Concomitant]
     Indication: PAIN
     Dosage: 5-60 MG DAILY
     Route: 048
  9. LEVOTHYROXINE [Concomitant]
     Indication: HYPOTHYROIDISM
     Route: 048
     Dates: start: 2012
  10. PROBIOTIC [Concomitant]
     Indication: PRODUCT USED FOR UNKNOWN INDICATION
     Route: 065
  11. VITAMIN [Concomitant]
     Indication: PRODUCT USED FOR UNKNOWN INDICATION
     Route: 065

REACTIONS (6)
  - Somnolence [Recovering/Resolving]
  - Weight decreased [Not Recovered/Not Resolved]
  - Pruritus generalised [Not Recovered/Not Resolved]
  - Application site rash [Not Recovered/Not Resolved]
  - Inappropriate schedule of drug administration [Not Recovered/Not Resolved]
  - Drug administration error [Not Recovered/Not Resolved]
